FAERS Safety Report 7241495-8 (Version None)
Quarter: 2011Q1

REPORT INFORMATION
  Report Type: 
  Country: None (occurrence: None)
  Receive Date: 20110124
  Receipt Date: 20110114
  Transmission Date: 20110831
  Serious: Yes (Hospitalization)
  Sender: FDA-Public Use
  Company Number: CH-ASTRAZENECA-2011SE03253

PATIENT
  Sex: Female

DRUGS (6)
  1. SEROQUEL XR [Suspect]
     Dosage: 100-150 MG DAILY
     Route: 048
     Dates: start: 20100315, end: 20101201
  2. SEROQUEL XR [Suspect]
     Route: 048
     Dates: start: 20101202
  3. SEROQUEL XR [Suspect]
     Route: 048
     Dates: start: 20101203, end: 20101209
  4. SEROQUEL XR [Suspect]
     Route: 048
     Dates: start: 20101210, end: 20101227
  5. VALPROATE [Suspect]
  6. SEROQUEL XR [Suspect]
     Route: 048
     Dates: start: 20101228

REACTIONS (3)
  - CONFUSIONAL STATE [None]
  - HYPONATRAEMIA [None]
  - DISORIENTATION [None]
